FAERS Safety Report 8052622-7 (Version None)
Quarter: 2012Q1

REPORT INFORMATION
  Report Type: 
  Country: None (occurrence: None)
  Receive Date: 20120118
  Receipt Date: 20120104
  Transmission Date: 20120608
  Serious: Yes (Other)
  Sender: FDA-Public Use
  Company Number: GR-ASTELLAS-2011US008667

PATIENT
  Age: 32 Week
  Sex: Male
  Weight: 2 kg

DRUGS (3)
  1. AMBISOME [Suspect]
     Indication: SYSTEMIC CANDIDA
     Dosage: UNK
     Route: 065
  2. ANTIBIOTICS [Concomitant]
     Indication: SEPSIS
  3. ANTIBIOTICS [Concomitant]
     Indication: MENINGITIS

REACTIONS (1)
  - DRUG INEFFECTIVE [None]
